FAERS Safety Report 16416740 (Version 1)
Quarter: 2019Q2

REPORT INFORMATION
  Report Type: Spontaneous
  Country: US (occurrence: US)
  Receive Date: 20190611
  Receipt Date: 20190611
  Transmission Date: 20190711
  Serious: No
  Sender: FDA-Public Use
  Company Number: US-ASTRAZENECA-2019SE85146

PATIENT

DRUGS (4)
  1. TUMS ULTRA [Suspect]
     Active Substance: CALCIUM CARBONATE
     Indication: HIATUS HERNIA
     Dosage: TOOK 2
     Route: 048
     Dates: start: 201905
  2. TUMS ULTRA [Suspect]
     Active Substance: CALCIUM CARBONATE
     Indication: GASTROOESOPHAGEAL REFLUX DISEASE
     Dosage: TOOK 2
     Route: 048
     Dates: start: 201905
  3. PRILOSEC OTC [Suspect]
     Active Substance: OMEPRAZOLE MAGNESIUM
     Indication: GASTROOESOPHAGEAL REFLUX DISEASE
     Dosage: 1 TABLET, 1 ONLY IN THE EVENING
     Route: 048
     Dates: start: 201905, end: 201905
  4. PRILOSEC OTC [Suspect]
     Active Substance: OMEPRAZOLE MAGNESIUM
     Indication: HIATUS HERNIA
     Dosage: 1 TABLET, 1 ONLY IN THE EVENING
     Route: 048
     Dates: start: 201905, end: 201905

REACTIONS (10)
  - Swollen tongue [Recovered/Resolved]
  - Dyspnoea [Recovered/Resolved]
  - Swelling face [Recovered/Resolved]
  - Salivary gland enlargement [Recovered/Resolved]
  - Product use in unapproved indication [Unknown]
  - Lip swelling [Recovered/Resolved]
  - Cough [Recovered/Resolved]
  - Swelling of eyelid [Recovered/Resolved]
  - Wheezing [Recovered/Resolved]
  - Inappropriate schedule of product administration [Unknown]

NARRATIVE: CASE EVENT DATE: 201905
